FAERS Safety Report 11902749 (Version 1)
Quarter: 2016Q1

REPORT INFORMATION
  Report Type: Report from Study
  Country: US (occurrence: US)
  Receive Date: 20160108
  Receipt Date: 20160108
  Transmission Date: 20160526
  Serious: No
  Sender: FDA-Public Use
  Company Number: US-ABBVIE-15P-163-1453554-00

PATIENT
  Age: 57 Year
  Sex: Female

DRUGS (2)
  1. TUMS [Concomitant]
     Active Substance: CALCIUM CARBONATE
     Indication: PRODUCT USED FOR UNKNOWN INDICATION
     Route: 065
  2. VIEKIRA PAK [Suspect]
     Active Substance: DASABUVIR\OMBITASVIR\PARITAPREVIR\RITONAVIR
     Indication: HEPATITIS C
     Dosage: 2 PINK AND 1 BEIGE TABLET IN AM AND 1 BEIGE TABLET IN EVENING
     Route: 048
     Dates: start: 20150722

REACTIONS (5)
  - Depressed mood [Unknown]
  - Pruritus [Unknown]
  - Depression [Unknown]
  - Skin reaction [Unknown]
  - Mood altered [Unknown]

NARRATIVE: CASE EVENT DATE: 201508
